FAERS Safety Report 4982812-9 (Version None)
Quarter: 2006Q2

REPORT INFORMATION
  Report Type: 
  Country: None (occurrence: None)
  Receive Date: 20060425
  Receipt Date: 20060301
  Transmission Date: 20061013
  Serious: Yes (Hospitalization)
  Sender: FDA-Public Use
  Company Number: US-MERCK-0603USA00499

PATIENT
  Age: 48 Year
  Sex: Male
  Weight: 109 kg

DRUGS (4)
  1. VIOXX [Suspect]
     Indication: ARTHRITIS
     Route: 048
     Dates: start: 20000810, end: 20031001
  2. ZOCOR [Concomitant]
     Route: 048
  3. LIPITOR [Concomitant]
     Route: 065
  4. LOPID [Concomitant]
     Route: 065

REACTIONS (19)
  - ACUTE CHEST SYNDROME [None]
  - ANGINA PECTORIS [None]
  - ARTERIOSCLEROSIS [None]
  - ASTHMA [None]
  - CARDIAC DISORDER [None]
  - CARDIOMEGALY [None]
  - CHEST DISCOMFORT [None]
  - CHEST PAIN [None]
  - CHRONIC OBSTRUCTIVE PULMONARY DISEASE [None]
  - CORONARY ARTERY DISEASE [None]
  - CORONARY ARTERY OCCLUSION [None]
  - CORONARY ARTERY STENOSIS [None]
  - DIABETES MELLITUS INADEQUATE CONTROL [None]
  - DIABETES MELLITUS NON-INSULIN-DEPENDENT [None]
  - HYPERCHOLESTEROLAEMIA [None]
  - HYPERLIPIDAEMIA [None]
  - HYPERTRIGLYCERIDAEMIA [None]
  - INTERVERTEBRAL DISC PROTRUSION [None]
  - PULMONARY VASCULAR DISORDER [None]
